FAERS Safety Report 7262513-7 (Version None)
Quarter: 2011Q1

REPORT INFORMATION
  Report Type: 
  Country: None (occurrence: None)
  Receive Date: 20110130
  Receipt Date: 20101124
  Transmission Date: 20110831
  Serious: No
  Sender: FDA-Public Use
  Company Number: US-ABBOTT-10P-163-0688333-00

PATIENT
  Weight: 69.462 kg

DRUGS (7)
  1. HUMIRA [Suspect]
     Indication: CROHN'S DISEASE
     Dates: start: 20100923, end: 20101104
  2. METOPROLOL [Concomitant]
     Indication: HYPERTENSION
  3. AMLODIPINE [Concomitant]
     Indication: HYPERTENSION
  4. PENTASA [Concomitant]
     Indication: CROHN'S DISEASE
  5. THEOPHYLLINE [Concomitant]
     Indication: ASTHMA
     Dosage: 1 PILL
  6. PROAIR HFA [Concomitant]
     Indication: ASTHMA
  7. SYMBICORT [Concomitant]
     Indication: ASTHMA

REACTIONS (4)
  - DYSPNOEA [None]
  - BLOOD CALCIUM INCREASED [None]
  - DYSURIA [None]
  - ASPARTATE AMINOTRANSFERASE DECREASED [None]
